FAERS Safety Report 21595258 (Version 1)
Quarter: 2022Q4

REPORT INFORMATION
  Report Type: Spontaneous
  Country: IR (occurrence: IR)
  Receive Date: 20221115
  Receipt Date: 20221115
  Transmission Date: 20230112
  Serious: Yes (Hospitalization, Other)
  Sender: FDA-Public Use
  Company Number: IR-SUN PHARMACEUTICAL INDUSTRIES LTD-2022R1-363373

PATIENT
  Age: 44 Year
  Sex: Male

DRUGS (1)
  1. METHADONE [Suspect]
     Active Substance: METHADONE HYDROCHLORIDE
     Indication: Product used for unknown indication
     Dosage: UNK
     Route: 065

REACTIONS (11)
  - Drug abuse [Unknown]
  - Toxicity to various agents [Unknown]
  - Miosis [Unknown]
  - Bradycardia [Unknown]
  - Aspiration [Unknown]
  - Lung abscess [Unknown]
  - Mental status changes [Unknown]
  - Headache [Unknown]
  - Balance disorder [Unknown]
  - Vertigo [Unknown]
  - Brain abscess [Unknown]
